FAERS Safety Report 8375874-2 (Version None)
Quarter: 2012Q1

REPORT INFORMATION
  Report Type: 
  Country: None (occurrence: None)
  Receive Date: 20120323
  Receipt Date: 20110921
  Transmission Date: 20120608
  Serious: Yes (Other)
  Sender: FDA-Public Use
  Company Number: 163-21880-11070963

PATIENT
  Age: 86 Year
  Sex: Female
  Weight: 60 kg

DRUGS (1)
  1. REVLIMID [Suspect]
     Indication: MULTIPLE MYELOMA
     Dosage: 25 MG, ONE WEEK ON/ONE WEEK OFF, PO
     Route: 048
     Dates: start: 20090715, end: 20110720

REACTIONS (3)
  - SKIN EXFOLIATION [None]
  - RENAL FAILURE [None]
  - ONYCHOMADESIS [None]
